FAERS Safety Report 6862509-0 (Version None)
Quarter: 2010Q3

REPORT INFORMATION
  Report Type: 
  Country: None (occurrence: None)
  Receive Date: 20100721
  Receipt Date: 20100709
  Transmission Date: 20110219
  Serious: Yes (Death, Hospitalization)
  Sender: FDA-Public Use
  Company Number: FR-KINGPHARMUSA00001-K201000869

PATIENT
  Age: 79 Year
  Sex: Male

DRUGS (1)
  1. ALTACE [Suspect]
     Indication: HYPERTENSION
     Dosage: UNK
     Route: 048
     Dates: end: 20100517

REACTIONS (4)
  - AGRANULOCYTOSIS [None]
  - INFECTION [None]
  - LUNG INFECTION PSEUDOMONAL [None]
  - THROMBOSIS [None]
